FAERS Safety Report 14905112 (Version 1)
Quarter: 2018Q2

REPORT INFORMATION
  Report Type: Spontaneous
  Country: US (occurrence: US)
  Receive Date: 20180517
  Receipt Date: 20180517
  Transmission Date: 20180711
  Serious: No
  Sender: FDA-Public Use
  Company Number: US-SA-2017SA187087

PATIENT
  Sex: Male

DRUGS (3)
  1. LANTUS SOLOSTAR [Suspect]
     Active Substance: INSULIN GLARGINE
     Dosage: FREQUENCY: 2-3 TIMES A DAY DOSE:20 UNIT(S)
     Route: 051
  2. NOVOLOG [Concomitant]
     Active Substance: INSULIN ASPART
     Route: 065
  3. SOLOSTAR [Suspect]
     Active Substance: DEVICE
     Dosage: FREQUENCY: 2-3 TIMES A DAY

REACTIONS (3)
  - Injection site pain [Unknown]
  - Product use issue [Unknown]
  - Blood glucose increased [Unknown]
